FAERS Safety Report 15900353 (Version 1)
Quarter: 2019Q1

REPORT INFORMATION
  Report Type: Report from Study
  Country: FR (occurrence: FR)
  Receive Date: 20190201
  Receipt Date: 20190201
  Transmission Date: 20190417
  Serious: Yes (Hospitalization)
  Sender: FDA-Public Use
  Company Number: FR-ACTELION-A-CH2019-185548

PATIENT
  Age: 10 Month
  Sex: Female

DRUGS (3)
  1. SILDENAFIL. [Concomitant]
     Active Substance: SILDENAFIL
  2. BOSENTAN TABLET 62.5 MG PED EU [Suspect]
     Active Substance: BOSENTAN
     Indication: PRODUCT USED FOR UNKNOWN INDICATION
     Route: 048
  3. TREPROSTINIL. [Concomitant]
     Active Substance: TREPROSTINIL

REACTIONS (2)
  - Hospitalisation [Unknown]
  - Product use issue [Unknown]
